FAERS Safety Report 9984712 (Version 1)
Quarter: 2014Q1

REPORT INFORMATION
  Report Type: Spontaneous
  Country: US (occurrence: US)
  Receive Date: 20140307
  Receipt Date: 20140307
  Transmission Date: 20141002
  Serious: Yes (Congenital Anomaly)
  Sender: FDA-Public Use
  Company Number: US-FRI-1000054994

PATIENT
  Age: 0 Day
  Sex: Male

DRUGS (2)
  1. LEXAPRO [Suspect]
     Route: 064
     Dates: end: 20050101
  2. PAXIL [Suspect]
     Route: 064
     Dates: end: 20050101

REACTIONS (4)
  - Cleft lip [Unknown]
  - Hydrocele [Unknown]
  - Hernia congenital [Unknown]
  - Congenital anomaly [Unknown]
